FAERS Safety Report 8846226 (Version 2)
Quarter: 2013Q2

REPORT INFORMATION
  Report Type: Spontaneous
  Country: US (occurrence: US)
  Receive Date: 20121017
  Receipt Date: 20130423
  Transmission Date: 20140414
  Serious: Yes (Other)
  Sender: FDA-Public Use
  Company Number: US-ASTRAZENECA-2012SE77558

PATIENT
  Age: 44 Year
  Sex: Male

DRUGS (13)
  1. CRESTOR [Suspect]
     Indication: LIPIDS INCREASED
     Route: 048
  2. CRESTOR [Suspect]
     Indication: LIPIDS INCREASED
     Route: 048
     Dates: start: 20040227
  3. ATENOLOL [Suspect]
     Route: 048
  4. LISINOPRIL [Suspect]
     Route: 048
  5. LISINOPRIL [Suspect]
     Route: 048
  6. METOPROLOL [Suspect]
     Indication: HYPERTENSION
     Route: 048
  7. METOPROLOL [Suspect]
     Indication: HYPERTENSION
     Route: 048
  8. NO SMOKING PATCHES [Suspect]
     Route: 065
  9. ALTACE [Concomitant]
  10. PLAVIX [Concomitant]
  11. SIMVASTATIN [Concomitant]
  12. LORTAB [Concomitant]
     Indication: ARTHRALGIA
  13. NAPROSYN [Concomitant]

REACTIONS (23)
  - Myocardial infarction [Unknown]
  - Wrist fracture [Unknown]
  - Upper limb fracture [Unknown]
  - Fall [Unknown]
  - Coronary artery disease [Unknown]
  - Choking [Unknown]
  - Dizziness [Recovered/Resolved]
  - Chest pain [Not Recovered/Not Resolved]
  - Hypertension [Unknown]
  - Fatigue [Unknown]
  - Dry mouth [Unknown]
  - Back pain [Unknown]
  - Pollakiuria [Unknown]
  - Hyperlipidaemia [Unknown]
  - Arthropod bite [Unknown]
  - Local swelling [Unknown]
  - Throat tightness [Unknown]
  - Nodule [Unknown]
  - Flank pain [Unknown]
  - Pain [Unknown]
  - Back injury [Unknown]
  - Dental caries [Unknown]
  - Drug dose omission [Unknown]
